FAERS Safety Report 5212716-8 (Version None)
Quarter: 2006Q4

REPORT INFORMATION
  Report Type: 
  Country: None (occurrence: None)
  Receive Date: 20061115
  Receipt Date: 20060925
  Transmission Date: 20070319
  Serious: Yes (Hospitalization)
  Sender: FDA-Public Use
  Company Number: 200615108BWH

PATIENT
  Age: 84 Year
  Sex: Male

DRUGS (6)
  1. NEXAVAR [Suspect]
     Indication: RENAL CELL CARCINOMA STAGE UNSPECIFIED
     Dosage: 400 MG, BID, ORAL
     Route: 048
     Dates: start: 20051209, end: 20060810
  2. PEPCID [Concomitant]
  3. SINEMET [Concomitant]
  4. UROXATRAL [Concomitant]
  5. MEGACE [Concomitant]
  6. TYLENOL (CAPLET) [Concomitant]

REACTIONS (4)
  - CONTUSION [None]
  - PLATELET COUNT DECREASED [None]
  - PUNCTURE SITE HAEMORRHAGE [None]
  - THROMBOCYTOPENIA [None]
